FAERS Safety Report 18681258 (Version 3)
Quarter: 2021Q2

REPORT INFORMATION
  Report Type: Report from Study
  Country: SE (occurrence: CN)
  Receive Date: 20201230
  Receipt Date: 20210610
  Transmission Date: 20210717
  Serious: Yes (Death, Life-Threatening, Hospitalization, Disabling)
  Sender: FDA-Public Use
  Company Number: CN-ELI_LILLY_AND_COMPANY-CN202012012990

PATIENT
  Age: 61 Year
  Sex: Male

DRUGS (14)
  1. SODIUM CHLORIDE. [Concomitant]
     Active Substance: SODIUM CHLORIDE
     Indication: PRODUCT USED FOR UNKNOWN INDICATION
     Dosage: UNK
     Route: 042
     Dates: start: 20200807
  2. MONOAMMONIUM GLYCYRRHIZINATE [Concomitant]
     Active Substance: AMMONIUM GLYCYRRHIZATE
     Dosage: 250 ML, SINGLE
     Route: 042
     Dates: start: 20201203, end: 20201203
  3. OMEPRAZOLE SODIUM [Concomitant]
     Active Substance: OMEPRAZOLE SODIUM
     Indication: PROTOTHECOSIS
     Dosage: 40 MG, SINGLE
     Route: 042
     Dates: start: 20201127, end: 20201127
  4. PEGYLATED RECOMBINANT HUMAN GRANULOCYTE COLON [Concomitant]
     Indication: LEUKOPENIA
     Dosage: 200 UG, SINGLE
     Route: 055
     Dates: start: 20201202, end: 20201202
  5. MONOAMMONIUM GLYCYRRHIZINATE [Concomitant]
     Active Substance: AMMONIUM GLYCYRRHIZATE
     Indication: LIVIDITY
     Dosage: 250 ML, SINGLE
     Route: 042
     Dates: start: 20201127, end: 20201127
  6. QIANG GU SHENG XUE KOU FU YE [Concomitant]
     Indication: ANAEMIA
     Dosage: 10 ML, DAILY
     Route: 048
     Dates: start: 20201124, end: 20201126
  7. PEGYLATED RECOMBINANT HUMAN GRANULOCYTE COLON [Concomitant]
     Dosage: 200 UG, SINGLE
     Route: 055
     Dates: start: 20201202, end: 20201202
  8. DEXAMETHASONE SODIUM PHOSPHATE. [Concomitant]
     Active Substance: DEXAMETHASONE SODIUM PHOSPHATE
     Indication: ALLERGY PROPHYLAXIS
     Dosage: 15 MG, DAILY
     Route: 042
     Dates: start: 20200807
  9. PALONOSETRON HYDROCHLORIDE. [Concomitant]
     Active Substance: PALONOSETRON HYDROCHLORIDE
     Indication: ANTIEMETIC SUPPORTIVE CARE
     Dosage: 5 ML, SINGLE
     Route: 042
     Dates: start: 20201106, end: 20201106
  10. GEMCITABINE HYDROCHLORIDE. [Suspect]
     Active Substance: GEMCITABINE HYDROCHLORIDE
     Indication: TRANSITIONAL CELL CANCER OF THE RENAL PELVIS AND URETER
     Dosage: 1000 MG/M2, CYCLICAL Q3W
     Route: 042
     Dates: start: 20200807
  11. DURVALUMAB. [Concomitant]
     Active Substance: DURVALUMAB
     Indication: TRANSITIONAL CELL CANCER OF THE RENAL PELVIS AND URETER
     Dosage: 1500 MG, CYCLICAL Q3W
     Route: 042
     Dates: start: 20200807
  12. CISPLATIN. [Concomitant]
     Active Substance: CISPLATIN
     Indication: TRANSITIONAL CELL CANCER OF THE RENAL PELVIS AND URETER
     Dosage: 70 MG/M2, CYCLICAL Q3W
     Route: 042
     Dates: start: 20200808
  13. CARBOPLATIN. [Concomitant]
     Active Substance: CARBOPLATIN
     Indication: TRANSITIONAL CELL CANCER OF THE RENAL PELVIS AND URETER
     Dosage: 4.5 AUC, CYCLICAL Q3W
     Route: 042
     Dates: start: 20201127
  14. PALONOSETRON HYDROCHLORIDE. [Concomitant]
     Active Substance: PALONOSETRON HYDROCHLORIDE
     Dosage: 5 ML, SINGLE
     Route: 042
     Dates: start: 20201203, end: 20201203

REACTIONS (5)
  - Myelosuppression [Unknown]
  - Thrombocytopenia [Recovered/Resolved]
  - Haemoglobin decreased [Recovered/Resolved]
  - Leukopenia [Recovered/Resolved]
  - Death [Fatal]

NARRATIVE: CASE EVENT DATE: 20201202
